FAERS Safety Report 10491494 (Version 1)
Quarter: 2014Q4

REPORT INFORMATION
  Report Type: Spontaneous
  Country: US (occurrence: US)
  Receive Date: 20141002
  Receipt Date: 20141002
  Transmission Date: 20150528
  Serious: No
  Sender: FDA-Public Use
  Company Number: US-GLAXOSMITHKLINE-A1054119A

PATIENT
  Age: 63 Year
  Sex: Female

DRUGS (21)
  1. PROVENTIL [Concomitant]
     Active Substance: ALBUTEROL
  2. AMOXICILLIN. [Concomitant]
     Active Substance: AMOXICILLIN
  3. AMLODIPINE [Concomitant]
     Active Substance: AMLODIPINE BESYLATE
  4. HEADACHE MEDICATION [Concomitant]
     Active Substance: UNSPECIFIED INGREDIENT
  5. BABY ASPIRIN [Concomitant]
     Active Substance: ASPIRIN
  6. LEXAPRO [Concomitant]
     Active Substance: ESCITALOPRAM OXALATE
  7. LABETALOL [Concomitant]
     Active Substance: LABETALOL\LABETALOL HYDROCHLORIDE
  8. FERROUS SULFATE [Concomitant]
     Active Substance: FERROUS SULFATE\FERROUS SULFATE, DRIED
  9. HYDRALAZINE [Concomitant]
     Active Substance: HYDRALAZINE HYDROCHLORIDE
  10. HCTZ [Concomitant]
     Active Substance: HYDROCHLOROTHIAZIDE
  11. OXYGEN THERAPY [Concomitant]
     Active Substance: OXYGEN
  12. NOVOLOG [Concomitant]
     Active Substance: INSULIN ASPART
  13. JANUVIA [Concomitant]
     Active Substance: SITAGLIPTIN PHOSPHATE
  14. ALBUTEROL NEBULIZER [Concomitant]
     Active Substance: ALBUTEROL
  15. ADVAIR HFA [Suspect]
     Active Substance: FLUTICASONE PROPIONATE\SALMETEROL XINAFOATE
     Indication: ASTHMA
     Dosage: 1PUFF TWICE PER DAY
     Route: 055
     Dates: start: 20131218
  16. SIMVASTATIN. [Concomitant]
     Active Substance: SIMVASTATIN
  17. LISINOPRIL. [Concomitant]
     Active Substance: LISINOPRIL
  18. HYDROXYZINE [Concomitant]
     Active Substance: HYDROXYZINE\HYDROXYZINE HYDROCHLORIDE
  19. FUROSEMIDE. [Concomitant]
     Active Substance: FUROSEMIDE
  20. ADVAIR HFA [Suspect]
     Active Substance: FLUTICASONE PROPIONATE\SALMETEROL XINAFOATE
     Indication: ASTHMA
     Dosage: 1PUFF TWICE PER DAY
     Route: 055
     Dates: start: 20131217, end: 20131217
  21. FOLIC ACID. [Concomitant]
     Active Substance: FOLIC ACID

REACTIONS (4)
  - Dyspnoea [Unknown]
  - Sensory disturbance [Unknown]
  - Cough [Not Recovered/Not Resolved]
  - Sputum discoloured [Unknown]

NARRATIVE: CASE EVENT DATE: 20131218
